FAERS Safety Report 17908069 (Version 3)
Quarter: 2020Q4

REPORT INFORMATION
  Report Type: Spontaneous
  Country: US (occurrence: US)
  Receive Date: 20200617
  Receipt Date: 20201222
  Transmission Date: 20210113
  Serious: No
  Sender: FDA-Public Use
  Company Number: US-SA-2020SA150018

PATIENT

DRUGS (1)
  1. LOVENOX [Suspect]
     Active Substance: ENOXAPARIN SODIUM
     Dosage: UNK
     Route: 065

REACTIONS (5)
  - Device malfunction [Unknown]
  - No adverse event [Unknown]
  - Syringe issue [Unknown]
  - Device failure [Unknown]
  - Needle issue [Unknown]
